FAERS Safety Report 11325416 (Version 1)
Quarter: 2015Q3

REPORT INFORMATION
  Report Type: Spontaneous
  Country: US (occurrence: US)
  Receive Date: 20150730
  Receipt Date: 20150730
  Transmission Date: 20151125
  Serious: No
  Sender: FDA-Public Use
  Company Number: US-ELI_LILLY_AND_COMPANY-US201507004115

PATIENT
  Sex: Female

DRUGS (2)
  1. HUMALOG MIX75/25 [Suspect]
     Active Substance: INSULIN LISPRO
     Indication: DIABETES MELLITUS
     Dosage: UNK
     Route: 065
  2. NOVOLOG [Concomitant]
     Active Substance: INSULIN ASPART

REACTIONS (3)
  - Dizziness [Unknown]
  - Drug dose omission [Unknown]
  - Malaise [Unknown]
